FAERS Safety Report 9243454 (Version 2)
Quarter: 2013Q2

REPORT INFORMATION
  Report Type: Spontaneous
  Country: DE (occurrence: DE)
  Receive Date: 20130422
  Receipt Date: 20130603
  Transmission Date: 20140414
  Serious: Yes (Hospitalization)
  Sender: FDA-Public Use
  Company Number: DE-BRISTOL-MYERS SQUIBB COMPANY-18770859

PATIENT
  Age: 50 Year
  Sex: Male

DRUGS (7)
  1. YERVOY [Suspect]
     Indication: METASTATIC MALIGNANT MELANOMA
     Dosage: LAST DOSE:12MAR2013
     Route: 042
     Dates: end: 20130312
  2. BISOPROLOL [Concomitant]
  3. PANTOZOL [Concomitant]
  4. NOVALGIN [Concomitant]
  5. L-THYROXINE [Concomitant]
     Dosage: 1DF: 100UNITS NOS
  6. PARACETAMOL [Concomitant]
  7. TRAMUNDIN [Concomitant]

REACTIONS (6)
  - Malignant neoplasm progression [Recovering/Resolving]
  - Mechanical ileus [Recovering/Resolving]
  - Blood urine present [Unknown]
  - Fructose intolerance [Recovering/Resolving]
  - Tongue discolouration [Unknown]
  - Dysphagia [Unknown]
